FAERS Safety Report 6667007-5 (Version None)
Quarter: 2010Q2

REPORT INFORMATION
  Report Type: 
  Country: None (occurrence: None)
  Receive Date: 20100402
  Receipt Date: 20100402
  Transmission Date: 20101027
  Serious: No
  Sender: FDA-Public Use
  Company Number: None

PATIENT
  Age: 51 Year
  Sex: Female
  Weight: 87.0906 kg

DRUGS (6)
  1. LEVAQUIN [Suspect]
     Indication: HOUSE DUST ALLERGY
     Dosage: 1 DAILY FOR 10 DAYS PO
     Route: 048
     Dates: start: 20090924, end: 20091003
  2. LEVAQUIN [Suspect]
     Indication: MULTIPLE ALLERGIES
     Dosage: 1 DAILY FOR 10 DAYS PO
     Route: 048
     Dates: start: 20090924, end: 20091003
  3. LEVAQUIN [Suspect]
     Indication: SINUSITIS
     Dosage: 1 DAILY FOR 10 DAYS PO
     Route: 048
     Dates: start: 20090924, end: 20091003
  4. LEVAQUIN [Suspect]
     Indication: HOUSE DUST ALLERGY
     Dosage: 1 DAILY FOR 10 DAYS PO
     Route: 048
     Dates: start: 20100318, end: 20100328
  5. LEVAQUIN [Suspect]
     Indication: MULTIPLE ALLERGIES
     Dosage: 1 DAILY FOR 10 DAYS PO
     Route: 048
     Dates: start: 20100318, end: 20100328
  6. LEVAQUIN [Suspect]
     Indication: SINUSITIS
     Dosage: 1 DAILY FOR 10 DAYS PO
     Route: 048
     Dates: start: 20100318, end: 20100328

REACTIONS (2)
  - ARTHRALGIA [None]
  - MUSCLE SPASMS [None]
